FAERS Safety Report 11677752 (Version 1)
Quarter: 2015Q4

REPORT INFORMATION
  Report Type: Spontaneous
  Country: US (occurrence: US)
  Receive Date: 20151028
  Receipt Date: 20151028
  Transmission Date: 20160304
  Serious: No
  Sender: FDA-Public Use
  Company Number: US-MYLANLABS-2014M1015452

PATIENT
  Age: 63 Year
  Sex: Female
  Weight: 56.69 kg

DRUGS (2)
  1. SELEGILINE [Concomitant]
     Active Substance: SELEGILINE
     Dosage: UNK UNK
  2. CARBIDOPA/LEVODOPA [Suspect]
     Active Substance: CARBIDOPA\LEVODOPA
     Indication: PARKINSON^S DISEASE
     Dosage: 25 MG, QID
     Route: 048
     Dates: start: 201409, end: 201412

REACTIONS (4)
  - Balance disorder [Recovering/Resolving]
  - Tremor [Recovering/Resolving]
  - Product substitution issue [None]
  - Speech disorder [Recovering/Resolving]

NARRATIVE: CASE EVENT DATE: 201409
